FAERS Safety Report 13631237 (Version 1)
Quarter: 2017Q2

REPORT INFORMATION
  Report Type: Spontaneous
  Country: US (occurrence: US)
  Receive Date: 20170531
  Receipt Date: 20170531
  Transmission Date: 20170830
  Serious: No
  Sender: FDA-Public Use
  Company Number: US-ASTELLAS-1365275

PATIENT
  Sex: Female

DRUGS (9)
  1. FENTANYL TRANSDERMAL SYSTEM [Concomitant]
     Active Substance: FENTANYL
  2. PRISTIQ EXTENDED-RELEASE [Concomitant]
     Active Substance: DESVENLAFAXINE SUCCINATE
  3. TARCEVA [Suspect]
     Active Substance: ERLOTINIB HYDROCHLORIDE
     Indication: PRODUCT USED FOR UNKNOWN INDICATION
     Route: 048
     Dates: start: 20140205, end: 20140312
  4. ZYPREXA [Concomitant]
     Active Substance: OLANZAPINE
  5. OXYCODONE [Concomitant]
     Active Substance: OXYCODONE
  6. APLENZIN [Concomitant]
     Active Substance: BUPROPION HYDROBROMIDE
  7. SYNTHROID [Concomitant]
     Active Substance: LEVOTHYROXINE SODIUM
  8. LAMICTAL [Concomitant]
     Active Substance: LAMOTRIGINE
  9. CLONAZEPAM. [Concomitant]
     Active Substance: CLONAZEPAM
     Route: 065

REACTIONS (1)
  - Bone pain [Unknown]
